FAERS Safety Report 4912919-3 (Version None)
Quarter: 2006Q1

REPORT INFORMATION
  Report Type: 
  Country: None (occurrence: None)
  Receive Date: 20060210
  Receipt Date: 20060130
  Transmission Date: 20060701
  Serious: Yes (Hospitalization)
  Sender: FDA-Public Use
  Company Number: B0408724A

PATIENT
  Age: 75 Year
  Sex: Male

DRUGS (5)
  1. TAGAMET [Suspect]
     Dates: end: 20011213
  2. LOXOPROFEN [Concomitant]
  3. RABEPRAZOLE SODIUM [Concomitant]
  4. FAMOTIDINE [Concomitant]
  5. ACETAMINOPHEN [Concomitant]

REACTIONS (16)
  - ANTINEUTROPHIL CYTOPLASMIC ANTIBODY INCREASED [None]
  - BLOOD ALKALINE PHOSPHATASE INCREASED [None]
  - BLOOD IMMUNOGLOBULIN G INCREASED [None]
  - BLOOD IMMUNOGLOBULIN M INCREASED [None]
  - BODY TEMPERATURE DECREASED [None]
  - HAEMOGLOBIN DECREASED [None]
  - HYPERTENSION [None]
  - KIDNEY FIBROSIS [None]
  - PLATELET COUNT DECREASED [None]
  - PROTEIN TOTAL INCREASED [None]
  - PRURITUS [None]
  - PYREXIA [None]
  - RASH [None]
  - RENAL FAILURE [None]
  - RENAL TUBULAR ATROPHY [None]
  - TUBULOINTERSTITIAL NEPHRITIS [None]
